FAERS Safety Report 23773951 (Version 2)
Quarter: 2024Q2

REPORT INFORMATION
  Report Type: Spontaneous
  Country: TR (occurrence: TR)
  Receive Date: 20240423
  Receipt Date: 20240513
  Transmission Date: 20240716
  Serious: Yes (Death, Hospitalization)
  Sender: FDA-Public Use
  Company Number: TR-TEVA-VS-3186691

PATIENT
  Age: 56 Year
  Sex: Male

DRUGS (1)
  1. CARBOPLATIN [Suspect]
     Active Substance: CARBOPLATIN
     Indication: Pilomatrix carcinoma
     Dosage: ADMINISTERED IN A 21-DAY CYCLE
     Route: 065

REACTIONS (1)
  - Drug ineffective [Fatal]
